FAERS Safety Report 16718646 (Version 1)
Quarter: 2019Q3

REPORT INFORMATION
  Report Type: Spontaneous
  Country: GB (occurrence: GB)
  Receive Date: 20190820
  Receipt Date: 20190820
  Transmission Date: 20191005
  Serious: Yes (Other)
  Sender: FDA-Public Use
  Company Number: GB-ACCORD-151956

PATIENT
  Age: 32 Year
  Sex: Female
  Weight: 126 kg

DRUGS (5)
  1. COLECALCIFEROL [Concomitant]
     Active Substance: CHOLECALCIFEROL
  2. LEVETIRACETAM ACCORD [Suspect]
     Active Substance: LEVETIRACETAM
     Indication: EPILEPSY
     Dosage: (12.5ML)
     Route: 048
     Dates: start: 20190518, end: 20190521
  3. HUMULIN L [Concomitant]
     Active Substance: INSULIN HUMAN
  4. HUMALOG [Concomitant]
     Active Substance: INSULIN LISPRO
  5. LAMOTRIGINE. [Concomitant]
     Active Substance: LAMOTRIGINE

REACTIONS (4)
  - Maternal exposure during pregnancy [Unknown]
  - Product substitution issue [Unknown]
  - Drug ineffective [Unknown]
  - Epilepsy [Recovered/Resolved]

NARRATIVE: CASE EVENT DATE: 20190518
